FAERS Safety Report 6005631-3 (Version None)
Quarter: 2008Q4

REPORT INFORMATION
  Report Type: 
  Country: None (occurrence: None)
  Receive Date: 20081215
  Receipt Date: 20081201
  Transmission Date: 20090506
  Serious: Yes (Other)
  Sender: FDA-Public Use
  Company Number: GXKR2008GB11473

PATIENT
  Age: 56 Year
  Sex: Male
  Weight: 76 kg

DRUGS (5)
  1. CODEINE PHOSPHATE (NGX) (CODEINE PHOSPHATE) UNKNOWN [Suspect]
     Indication: ANALGESIA
     Dosage: 60 MG, QID, ORAL
     Route: 048
     Dates: start: 20081029, end: 20081031
  2. HYDROCORTISONE [Concomitant]
  3. RANITIDINE [Concomitant]
  4. SIMVASTATIN [Concomitant]
  5. TAMSULOSIN HCL [Concomitant]

REACTIONS (1)
  - HALLUCINATION, VISUAL [None]
